FAERS Safety Report 6857707-6 (Version None)
Quarter: 2010Q3

REPORT INFORMATION
  Report Type: 
  Country: None (occurrence: None)
  Receive Date: 20100719
  Receipt Date: 20080124
  Transmission Date: 20110219
  Serious: No
  Sender: FDA-Public Use
  Company Number: US-PFIZER INC-2008010080

PATIENT
  Sex: Female
  Weight: 29.9 kg

DRUGS (4)
  1. CHANTIX [Suspect]
     Indication: SMOKING CESSATION THERAPY
     Dates: start: 20080110
  2. MICARDIS HCT [Concomitant]
     Indication: BLOOD PRESSURE
  3. LISINOPRIL [Concomitant]
  4. DESOXIMETASONE [Concomitant]
     Indication: RASH

REACTIONS (1)
  - FLATULENCE [None]
